FAERS Safety Report 23701778 (Version 1)
Quarter: 2024Q2

REPORT INFORMATION
  Report Type: Spontaneous
  Country: US (occurrence: US)
  Receive Date: 20240403
  Receipt Date: 20240403
  Transmission Date: 20240716
  Serious: Yes (Other)
  Sender: FDA-Public Use
  Company Number: US-PFIZER INC-202400075592

PATIENT
  Sex: Female

DRUGS (5)
  1. ALTACE [Suspect]
     Active Substance: RAMIPRIL
     Dosage: 5MG TWICE A DAY
     Dates: start: 1997
  2. ALTACE [Suspect]
     Active Substance: RAMIPRIL
     Dosage: 5MG IN AM AND INCREASED DOSE TO 10MG AT NIGHT
  3. ALTACE [Suspect]
     Active Substance: RAMIPRIL
     Dosage: 5MG IN AM AND 5MG AT NIGHT
  4. AMLODIPINE [Concomitant]
     Active Substance: AMLODIPINE BESYLATE
     Dosage: 5MG AT 6AM AND 6PM, TWICE A DAY
  5. METOPROLOL [Concomitant]
     Active Substance: METOPROLOL
     Dosage: 25MG IN THE MORNING AND NIGHT. 6AM AND 6PM

REACTIONS (3)
  - Cerebrovascular accident [Unknown]
  - Gait disturbance [Unknown]
  - Dizziness [Unknown]
